FAERS Safety Report 5672013-3 (Version None)
Quarter: 2008Q2

REPORT INFORMATION
  Report Type: 
  Country: None (occurrence: None)
  Receive Date: 20080219
  Receipt Date: 20071113
  Transmission Date: 20081010
  Serious: No
  Sender: FDA-Public Use
  Company Number: TPA2007A02342

PATIENT
  Age: 49 Year
  Sex: Female
  Weight: 63.5036 kg

DRUGS (7)
  1. ROZEREM [Suspect]
     Indication: INITIAL INSOMNIA
     Dosage: 8 MG, HS, PER ORAL
     Route: 048
     Dates: start: 20071109
  2. ALLEGRA D (PSEUDOEPHEDRINE HYDROCHLORIDE, FEXOFENADINE HYDROCHLORIDE) [Concomitant]
  3. NEURONTIN [Concomitant]
  4. DIOVAN [Concomitant]
  5. DEPAKOTE [Concomitant]
  6. PREVACID (LANSOPRAZOLE) (TABLETS) [Concomitant]
  7. FOLTRIN UD (ASCORBIC ACID, FOLIC ACID, CYANOCOBALAMIN, FERROUS FUMARAT [Concomitant]

REACTIONS (1)
  - DRUG INEFFECTIVE [None]
